FAERS Safety Report 5322147-8 (Version None)
Quarter: 2007Q2

REPORT INFORMATION
  Report Type: 
  Country: None (occurrence: None)
  Receive Date: 20070511
  Receipt Date: 20070504
  Transmission Date: 20071010
  Serious: Yes (Hospitalization)
  Sender: FDA-Public Use
  Company Number: US-AMGEN-US223248

PATIENT
  Age: 72 Year
  Sex: Male

DRUGS (2)
  1. ARANESP [Suspect]
     Indication: DRUG USE FOR UNKNOWN INDICATION
     Route: 058
  2. IRON DEXTRAN [Concomitant]
     Dates: start: 20070430, end: 20070503

REACTIONS (2)
  - HAEMOGLOBIN DECREASED [None]
  - HOSPITALISATION [None]
